FAERS Safety Report 15579438 (Version 1)
Quarter: 2018Q4

REPORT INFORMATION
  Report Type: Spontaneous
  Country: CN (occurrence: CN)
  Receive Date: 20181102
  Receipt Date: 20181102
  Transmission Date: 20190205
  Serious: Yes (Hospitalization, Other)
  Sender: FDA-Public Use
  Company Number: CN-SA-2018SA289813

PATIENT
  Age: 81 Year
  Sex: Female

DRUGS (5)
  1. BISOPROLOL SALT NOT SPECIFIED [Interacting]
     Active Substance: BISOPROLOL
     Dosage: 2.5 MG, QD
  2. ACETYLSALICYLIC ACID [Suspect]
     Active Substance: ASPIRIN
     Dosage: 100 MG, QD
  3. AMIODARONE HYDROCHLORIDE. [Interacting]
     Active Substance: AMIODARONE HYDROCHLORIDE
     Dosage: 200 MG
  4. ROSUVASTATIN CALCIUM. [Suspect]
     Active Substance: ROSUVASTATIN CALCIUM
  5. CLOPIDOGREL BISULFATE. [Suspect]
     Active Substance: CLOPIDOGREL BISULFATE
     Dosage: 75 MG, QD

REACTIONS (7)
  - Sinus node dysfunction [Recovering/Resolving]
  - Tachypnoea [Recovering/Resolving]
  - Sinus bradycardia [Recovering/Resolving]
  - Chest pain [Recovering/Resolving]
  - Sinus arrhythmia [Recovering/Resolving]
  - Chest discomfort [Recovering/Resolving]
  - Drug interaction [Unknown]
